FAERS Safety Report 9311314 (Version 2)
Quarter: 2013Q2

REPORT INFORMATION
  Report Type: Spontaneous
  Country: CA (occurrence: CA)
  Receive Date: 20130528
  Receipt Date: 20130605
  Transmission Date: 20140414
  Serious: Yes (Hospitalization)
  Sender: FDA-Public Use
  Company Number: CA-JNJFOC-20130516103

PATIENT
  Age: 65 Year
  Sex: Female
  Weight: 56.7 kg

DRUGS (4)
  1. NICODERM CQ [Suspect]
     Indication: SMOKING CESSATION THERAPY
     Route: 062
     Dates: start: 20130512, end: 20130521
  2. ADVIL [Concomitant]
     Indication: SPINAL COLUMN STENOSIS
     Route: 065
  3. RIVOTRIL [Concomitant]
     Indication: ANXIETY
     Route: 065
  4. ADACEL [Concomitant]
     Indication: SPINAL COLUMN STENOSIS
     Route: 065
     Dates: start: 2009

REACTIONS (5)
  - Palpitations [Recovered/Resolved]
  - Tremor [Recovered/Resolved]
  - Insomnia [Recovered/Resolved]
  - Nightmare [Recovered/Resolved]
  - Nicotine dependence [Unknown]
